FAERS Safety Report 12447282 (Version 1)
Quarter: 2016Q2

REPORT INFORMATION
  Report Type: Spontaneous
  Country: US (occurrence: None)
  Receive Date: 20160607
  Receipt Date: 20160607
  Transmission Date: 20160815
  Serious: Yes (Life-Threatening, Disabling)
  Sender: FDA-Public Use
  Company Number: None

PATIENT
  Age: 72 Year
  Sex: Female
  Weight: 63.5 kg

DRUGS (7)
  1. MELOXICAM. [Concomitant]
     Active Substance: MELOXICAM
  2. IVC FILTER [Concomitant]
  3. VITAMIN E [Concomitant]
     Active Substance: .ALPHA.-TOCOPHEROL
  4. XARELTO [Suspect]
     Active Substance: RIVAROXABAN
     Indication: THROMBOSIS
     Dosage: 20 MG 1 A DAY
     Dates: start: 20150917, end: 20160221
  5. IRON [Concomitant]
     Active Substance: IRON
  6. CALCIUM 600+D [Suspect]
     Active Substance: CALCIUM\VITAMIN D
  7. CITALOPRAM [Concomitant]
     Active Substance: CITALOPRAM HYDROBROMIDE

REACTIONS (11)
  - Mouth swelling [None]
  - Skin haemorrhage [None]
  - Chest pain [None]
  - Body temperature abnormal [None]
  - Dyspnoea [None]
  - Gait disturbance [None]
  - Haematochezia [None]
  - Rash [None]
  - Feeling abnormal [None]
  - Hypoaesthesia [None]
  - Haemoptysis [None]
